FAERS Safety Report 8397085-7 (Version None)
Quarter: 2012Q2

REPORT INFORMATION
  Report Type: 
  Country: None (occurrence: None)
  Receive Date: 20120530
  Receipt Date: 20120515
  Transmission Date: 20120825
  Serious: Yes (Other)
  Sender: FDA-Public Use
  Company Number: CHPA2012US011091

PATIENT
  Age: 71 Year
  Sex: Female

DRUGS (1)
  1. EXCEDRIN (MIGRAINE) [Suspect]
     Indication: MIGRAINE
     Dosage: 1-2 DF, ALMOST EVERYDAY
     Route: 048

REACTIONS (5)
  - UNDERDOSE [None]
  - DRUG DEPENDENCE [None]
  - DISEASE RECURRENCE [None]
  - REBOUND EFFECT [None]
  - MIGRAINE [None]
